FAERS Safety Report 12446764 (Version 1)
Quarter: 2016Q2

REPORT INFORMATION
  Report Type: Spontaneous
  Country: US (occurrence: None)
  Receive Date: 20160607
  Receipt Date: 20160607
  Transmission Date: 20160815
  Serious: No
  Sender: FDA-Public Use
  Company Number: None

PATIENT
  Age: 75 Year
  Sex: Female

DRUGS (1)
  1. SPRYCEL [Suspect]
     Active Substance: DASATINIB
     Indication: CHRONIC MYELOID LEUKAEMIA
     Dosage: OVER 1 YEAR SPRYCEL 50MG QD ORAL
     Route: 048

REACTIONS (3)
  - Dyspnoea [None]
  - Blood pressure systolic increased [None]
  - Chest pain [None]

NARRATIVE: CASE EVENT DATE: 20160102
